FAERS Safety Report 10600969 (Version 2)
Quarter: 2014Q4

REPORT INFORMATION
  Report Type: Spontaneous
  Country: US (occurrence: US)
  Receive Date: 20141124
  Receipt Date: 20141124
  Transmission Date: 20150529
  Serious: Yes (Hospitalization)
  Sender: FDA-Public Use
  Company Number: US-BEH-2011029133

PATIENT
  Age: 50 Year
  Sex: Female
  Weight: 87 kg

DRUGS (13)
  1. AMITRIPTYLINE [Concomitant]
     Active Substance: AMITRIPTYLINE
  2. WELLBUTRIN [Concomitant]
     Active Substance: BUPROPION HYDROCHLORIDE
  3. ADVIL [Concomitant]
     Active Substance: IBUPROFEN
  4. ZEMAIRA [Suspect]
     Active Substance: .ALPHA.1-PROTEINASE INHIBITOR HUMAN
     Dosage: MAX RATE: 0.08 ML/KG/MIN (7.1 ML/MIN)
     Route: 042
  5. SPIRIVA [Concomitant]
     Active Substance: TIOTROPIUM BROMIDE MONOHYDRATE
  6. ALBUTEROL. [Concomitant]
     Active Substance: ALBUTEROL
  7. ALBUTEROL. [Concomitant]
     Active Substance: ALBUTEROL
  8. FLOVENT [Concomitant]
     Active Substance: FLUTICASONE PROPIONATE
  9. OXYGEN. [Concomitant]
     Active Substance: OXYGEN
  10. ZEMAIRA [Suspect]
     Active Substance: .ALPHA.1-PROTEINASE INHIBITOR HUMAN
     Indication: ALPHA-1 ANTI-TRYPSIN DEFICIENCY
     Dosage: 968 MG VIAL/20ML;8.3 ML/MIN.
     Route: 042
     Dates: start: 20090623, end: 20110703
  11. HEPARIN [Concomitant]
     Active Substance: HEPARIN SODIUM
  12. ADVAIR HFA [Concomitant]
     Active Substance: FLUTICASONE PROPIONATE\SALMETEROL XINAFOATE
  13. SODIUM CHLORIDE. [Concomitant]
     Active Substance: SODIUM CHLORIDE

REACTIONS (11)
  - Syncope [Unknown]
  - Hypotension [Unknown]
  - Discomfort [Recovered/Resolved]
  - Confusional state [Recovered/Resolved]
  - Hypersensitivity [Unknown]
  - Dizziness [Recovered/Resolved]
  - Influenza like illness [Unknown]
  - Hypoaesthesia [Recovered/Resolved]
  - Adverse reaction [Unknown]
  - Chest pain [Unknown]
  - Flushing [Unknown]

NARRATIVE: CASE EVENT DATE: 20110703
